FAERS Safety Report 4336694-9 (Version None)
Quarter: 2004Q2

REPORT INFORMATION
  Report Type: 
  Country: None (occurrence: None)
  Receive Date: 20040408
  Receipt Date: 20040324
  Transmission Date: 20050107
  Serious: Yes (Hospitalization)
  Sender: FDA-Public Use
  Company Number: 194855

PATIENT
  Age: 38 Year
  Sex: Female

DRUGS (1)
  1. AVONEX [Suspect]
     Indication: MULTIPLE SCLEROSIS

REACTIONS (4)
  - INTERVERTEBRAL DISC INJURY [None]
  - LUMBAR VERTEBRAL FRACTURE [None]
  - MUSCLE STRAIN [None]
  - POST PROCEDURAL COMPLICATION [None]
